FAERS Safety Report 25915835 (Version 3)
Quarter: 2025Q4

REPORT INFORMATION
  Report Type: Report from Study
  Country: CA (occurrence: CA)
  Receive Date: 20251013
  Receipt Date: 20251107
  Transmission Date: 20260118
  Serious: Yes (Disabling)
  Sender: HLS THERAPEUTICS
  Company Number: CA-HLS-202502596

PATIENT
  Sex: Male

DRUGS (1)
  1. CLOZARIL [Suspect]
     Active Substance: CLOZAPINE
     Indication: Product used for unknown indication
     Route: 048
     Dates: start: 20250918

REACTIONS (5)
  - Physical disability [Unknown]
  - Aphonia [Unknown]
  - Withdrawal syndrome [Unknown]
  - Sexual dysfunction [Unknown]
  - Fatigue [Unknown]
